FAERS Safety Report 4746247-6 (Version None)
Quarter: 2005Q3

REPORT INFORMATION
  Report Type: 
  Country: None (occurrence: None)
  Receive Date: 20050816
  Receipt Date: 20050729
  Transmission Date: 20060218
  Serious: Yes (Other)
  Sender: FDA-Public Use
  Company Number: USA0507102378

PATIENT
  Age: 77 Year
  Sex: Female

DRUGS (5)
  1. FORTEO [Suspect]
     Indication: BONE DENSITY DECREASED
     Dosage: 20 UG/1 DAY
     Dates: start: 20050408, end: 20050713
  2. LASIX [Concomitant]
  3. LANOXIN [Concomitant]
  4. INDERAL [Concomitant]
  5. COUMADIN [Concomitant]

REACTIONS (7)
  - FATIGUE [None]
  - INSOMNIA [None]
  - JOINT SWELLING [None]
  - MUSCLE SPASMS [None]
  - OEDEMA PERIPHERAL [None]
  - PHARMACEUTICAL PRODUCT COMPLAINT [None]
  - TRICUSPID VALVE INCOMPETENCE [None]
